FAERS Safety Report 7215020-1 (Version None)
Quarter: 2011Q1

REPORT INFORMATION
  Report Type: 
  Country: None (occurrence: None)
  Receive Date: 20110107
  Receipt Date: 20100907
  Transmission Date: 20110831
  Serious: No
  Sender: FDA-Public Use
  Company Number: A0869740A

PATIENT
  Age: 60 Year
  Sex: Female

DRUGS (3)
  1. SIMVASTATIN [Concomitant]
  2. LOVAZA [Suspect]
     Dosage: 2CAP TWICE PER DAY
     Route: 048
     Dates: start: 20080701
  3. UNKNOWN MEDICATION [Concomitant]

REACTIONS (3)
  - PRODUCT QUALITY ISSUE [None]
  - NAUSEA [None]
  - ERUCTATION [None]
